FAERS Safety Report 5636582-1 (Version None)
Quarter: 2008Q1

REPORT INFORMATION
  Report Type: 
  Country: None (occurrence: None)
  Receive Date: 20080219
  Receipt Date: 20080207
  Transmission Date: 20080703
  Serious: Yes (Other)
  Sender: FDA-Public Use
  Company Number: 2008003111

PATIENT
  Age: 20 Year
  Sex: Female

DRUGS (3)
  1. CETIRIZINE HCL [Suspect]
     Indication: PRURITUS
     Dosage: 10 MG
  2. URSODIOL [Suspect]
     Indication: CHOLESTASIS OF PREGNANCY
     Dosage: 250 MG, ORAL
     Route: 048
  3. ANAESTHETICS (ANAESTHETICS) [Concomitant]

REACTIONS (5)
  - CAESAREAN SECTION [None]
  - DRUG EXPOSURE DURING PREGNANCY [None]
  - ECLAMPSIA [None]
  - FOETAL DISTRESS SYNDROME [None]
  - PREMATURE BABY [None]
